FAERS Safety Report 13382747 (Version 5)
Quarter: 2017Q3

REPORT INFORMATION
  Report Type: Report from Study
  Country: None (occurrence: US)
  Receive Date: 20170329
  Receipt Date: 20170802
  Transmission Date: 20171127
  Serious: Yes (Other)
  Sender: FDA-Public Use
  Company Number: US-ABBVIE-17K-163-1923197-00

PATIENT
  Age: 81 Year
  Sex: Female

DRUGS (3)
  1. HUMIRA [Suspect]
     Active Substance: ADALIMUMAB
     Route: 058
     Dates: start: 20170407, end: 20170505
  2. HUMIRA [Suspect]
     Active Substance: ADALIMUMAB
     Indication: RHEUMATOID ARTHRITIS
     Route: 058
  3. HUMIRA [Suspect]
     Active Substance: ADALIMUMAB
     Route: 058
     Dates: end: 201608

REACTIONS (27)
  - Haemorrhagic diathesis [Not Recovered/Not Resolved]
  - Loss of personal independence in daily activities [Unknown]
  - Knee arthroplasty [Unknown]
  - Increased tendency to bruise [Not Recovered/Not Resolved]
  - Pain in extremity [Unknown]
  - Hypoaesthesia [Unknown]
  - Sensory disturbance [Not Recovered/Not Resolved]
  - Pain in extremity [Recovered/Resolved]
  - Urinary tract infection [Unknown]
  - Hypoaesthesia [Recovering/Resolving]
  - Fall [Unknown]
  - Herpes zoster [Recovering/Resolving]
  - Pain in extremity [Not Recovered/Not Resolved]
  - Impaired healing [Unknown]
  - Joint stiffness [Not Recovered/Not Resolved]
  - Vomiting [Unknown]
  - Groin pain [Recovered/Resolved]
  - Musculoskeletal stiffness [Not Recovered/Not Resolved]
  - Back pain [Unknown]
  - Pain in extremity [Not Recovered/Not Resolved]
  - Arthralgia [Unknown]
  - Knee arthroplasty [Unknown]
  - Spinal operation [Unknown]
  - Hip arthroplasty [Unknown]
  - Sarcoma [Unknown]
  - Contusion [Not Recovered/Not Resolved]
  - Nausea [Unknown]

NARRATIVE: CASE EVENT DATE: 2005
